FAERS Safety Report 17673873 (Version 2)
Quarter: 2020Q2

REPORT INFORMATION
  Report Type: Spontaneous
  Country: US (occurrence: US)
  Receive Date: 20200415
  Receipt Date: 20200508
  Transmission Date: 20200714
  Serious: No
  Sender: FDA-Public Use
  Company Number: US-009507513-2004USA003958

PATIENT
  Age: 67 Year
  Sex: Female

DRUGS (3)
  1. ASMANEX [Suspect]
     Active Substance: MOMETASONE FUROATE
     Dosage: 1 PUFF ONCE A DAY
     Dates: start: 202003, end: 20200409
  2. ASMANEX [Suspect]
     Active Substance: MOMETASONE FUROATE
     Dosage: 1 PUFF ONCE A DAY
     Dates: start: 20200410
  3. ASMANEX [Suspect]
     Active Substance: MOMETASONE FUROATE
     Dosage: 1 PUFF A DAY

REACTIONS (6)
  - Product dose omission [Unknown]
  - Device malfunction [Unknown]
  - Product dose omission [Unknown]
  - Incorrect dose administered by product [Unknown]
  - Circumstance or information capable of leading to device use error [Unknown]
  - Poor quality device used [Unknown]

NARRATIVE: CASE EVENT DATE: 202003
